FAERS Safety Report 13776946 (Version 1)
Quarter: 2017Q3

REPORT INFORMATION
  Report Type: Spontaneous
  Country: GB (occurrence: GB)
  Receive Date: 20170721
  Receipt Date: 20170721
  Transmission Date: 20171127
  Serious: Yes (Life-Threatening, Hospitalization)
  Sender: FDA-Public Use
  Company Number: GB-PFIZER INC-2017314957

PATIENT
  Age: 45 Year
  Sex: Female
  Weight: 120 kg

DRUGS (2)
  1. SENNA /00142201/ [Concomitant]
     Active Substance: SENNA LEAF
     Dosage: UNK
  2. TRANEXAMIC ACID. [Suspect]
     Active Substance: TRANEXAMIC ACID
     Indication: MENORRHAGIA
     Dosage: 1000 MG, 3X/DAY
     Route: 048
     Dates: start: 20160310, end: 20170626

REACTIONS (4)
  - Mitral valve incompetence [Recovered/Resolved]
  - Chest pain [Recovered/Resolved]
  - Acute coronary syndrome [Recovered/Resolved with Sequelae]
  - Dilatation atrial [Recovered/Resolved]

NARRATIVE: CASE EVENT DATE: 20160626
